FAERS Safety Report 13819788 (Version 1)
Quarter: 2017Q3

REPORT INFORMATION
  Report Type: Spontaneous
  Country: US (occurrence: US)
  Receive Date: 20170731
  Receipt Date: 20170731
  Transmission Date: 20171127
  Serious: Yes (Hospitalization)
  Sender: FDA-Public Use
  Company Number: None

PATIENT
  Age: 79 Year
  Sex: Male
  Weight: 59.69 kg

DRUGS (1)
  1. PREDNISONE. [Suspect]
     Active Substance: PREDNISONE
     Indication: CHRONIC OBSTRUCTIVE PULMONARY DISEASE
     Route: 048
     Dates: start: 20170718, end: 20170718

REACTIONS (5)
  - Pneumonitis [None]
  - Pleural effusion [None]
  - Dyspnoea [None]
  - Chronic obstructive pulmonary disease [None]
  - Hyperglycaemia [None]

NARRATIVE: CASE EVENT DATE: 20170718
